FAERS Safety Report 8720551 (Version 2)
Quarter: 2015Q2

REPORT INFORMATION
  Report Type: Report from Study
  Country: US (occurrence: US)
  Receive Date: 20120907
  Receipt Date: 20150630
  Transmission Date: 20150821
  Serious: Yes (Life-Threatening, Hospitalization)
  Sender: FDA-Public Use
  Company Number: US-ROCHE-1098942

PATIENT
  Sex: Male

DRUGS (16)
  1. ACTIVASE [Suspect]
     Active Substance: ALTEPLASE
     Indication: MYOCARDIAL INFARCTION
  2. ISORDIL [Concomitant]
     Active Substance: ISOSORBIDE DINITRATE
     Route: 065
  3. TYLENOL [Concomitant]
     Active Substance: ACETAMINOPHEN
     Dosage: EVERY FOUR HOURS
     Route: 048
  4. LIDOCAIN [Concomitant]
     Active Substance: LIDOCAINE
     Dosage: 4 MG PER MINUTE
     Route: 040
  5. ASPIRIN. [Concomitant]
     Active Substance: ASPIRIN
     Route: 048
  6. NITROGLYCERINE [Concomitant]
     Active Substance: NITROGLYCERIN
     Dosage: PRN
     Route: 060
  7. MORPHINE [Concomitant]
     Active Substance: MORPHINE
     Dosage: 2-5 MG
     Route: 042
  8. DARVOCET-N 100 [Concomitant]
     Active Substance: ACETAMINOPHEN\PROPOXYPHENE NAPSYLATE
     Dosage: 4-6 HOURS, AS NEEDED
     Route: 048
  9. ACTIVASE [Suspect]
     Active Substance: ALTEPLASE
     Indication: ACUTE MYOCARDIAL INFARCTION
     Route: 042
  10. HEPARIN [Concomitant]
     Active Substance: HEPARIN SODIUM
     Dosage: 20ML PER HOUR
     Route: 040
  11. ISORDIL [Concomitant]
     Active Substance: ISOSORBIDE DINITRATE
     Route: 065
  12. THIAMINE [Concomitant]
     Active Substance: THIAMINE
     Route: 048
  13. DRAMAMINE [Concomitant]
     Active Substance: DIMENHYDRINATE
     Dosage: 50-75 MG, EVERY 4- 6 HRS, AS NEEDED.
     Route: 042
  14. SURFAK (UNITED STATES) [Concomitant]
     Route: 048
  15. ATROPINE [Concomitant]
     Active Substance: ATROPINE
     Route: 065
  16. PEPCID [Concomitant]
     Active Substance: FAMOTIDINE
     Dosage: 1 Q 4-6 HRS, PRN
     Route: 048

REACTIONS (13)
  - Anxiety [Unknown]
  - Ventricular tachycardia [Unknown]
  - Bradycardia [Unknown]
  - Headache [Unknown]
  - Tachycardia [Unknown]
  - Haematochezia [Unknown]
  - Atrioventricular block [Unknown]
  - Reperfusion arrhythmia [Unknown]
  - Myocardial infarction [Unknown]
  - Hypotension [Unknown]
  - Malaise [Unknown]
  - Ventricular extrasystoles [Unknown]
  - Electrocardiogram abnormal [Unknown]
